FAERS Safety Report 4930969-8 (Version None)
Quarter: 2006Q1

REPORT INFORMATION
  Report Type: 
  Country: None (occurrence: None)
  Receive Date: 20060227
  Receipt Date: 20060214
  Transmission Date: 20060701
  Serious: Yes (Life-Threatening, Hospitalization)
  Sender: FDA-Public Use
  Company Number: GXKR2006MX00737

PATIENT
  Age: 34 Year
  Sex: Male

DRUGS (3)
  1. VERAPAMIL [Suspect]
     Dosage: 3600 MG, ORAL
     Route: 048
  2. LEVOTHYROXINE SODIUM [Concomitant]
  3. ATORVASTATIN CALCIUM [Concomitant]

REACTIONS (13)
  - ATRIOVENTRICULAR BLOCK SECOND DEGREE [None]
  - BLOOD CREATININE INCREASED [None]
  - BLOOD GLUCOSE INCREASED [None]
  - BLOOD POTASSIUM DECREASED [None]
  - BLOOD SODIUM INCREASED [None]
  - BUNDLE BRANCH BLOCK LEFT [None]
  - COMA [None]
  - HYPOTENSION [None]
  - INTENTIONAL OVERDOSE [None]
  - LACTIC ACIDOSIS [None]
  - PILOERECTION [None]
  - PULMONARY HYPERTENSION [None]
  - VOMITING [None]
